FAERS Safety Report 5530869-9 (Version None)
Quarter: 2007Q4

REPORT INFORMATION
  Report Type: 
  Country: None (occurrence: None)
  Receive Date: 20071130
  Receipt Date: 20071120
  Transmission Date: 20080405
  Serious: Yes (Other)
  Sender: FDA-Public Use
  Company Number: US-PFIZER INC-2007088434

PATIENT
  Age: 24 Year
  Sex: Female

DRUGS (3)
  1. LYRICA [Suspect]
     Indication: CONVULSION
     Route: 048
  2. LYRICA [Suspect]
     Indication: PAIN
  3. LEXAPRO [Concomitant]

REACTIONS (3)
  - ELECTROENCEPHALOGRAM ABNORMAL [None]
  - GRAND MAL CONVULSION [None]
  - ROAD TRAFFIC ACCIDENT [None]
